FAERS Safety Report 6964889-4 (Version None)
Quarter: 2010Q3

REPORT INFORMATION
  Report Type: 
  Country: None (occurrence: None)
  Receive Date: 20100903
  Receipt Date: 20100827
  Transmission Date: 20110219
  Serious: Yes (Hospitalization)
  Sender: FDA-Public Use
  Company Number: JP-ELI_LILLY_AND_COMPANY-JP201008000447

PATIENT
  Sex: Male
  Weight: 73.5 kg

DRUGS (11)
  1. HUMATROPE [Suspect]
     Indication: GROWTH HORMONE DEFICIENCY
     Dosage: 0.2 MG, DAILY (1/D)
     Route: 058
     Dates: start: 20060706
  2. HUMATROPE [Suspect]
     Dosage: 0.6 MG, DAILY (1/D)
     Route: 058
     Dates: start: 20070101, end: 20070101
  3. HUMATROPE [Suspect]
     Dosage: 0.1-0.2 MG, DAILY (1/D)
     Route: 058
     Dates: start: 20070707, end: 20100301
  4. HUMATROPE [Suspect]
     Dosage: UNK, DAILY (1/D)
     Route: 058
     Dates: start: 20100419
  5. CORTRIL [Concomitant]
     Indication: HYPOPITUITARISM
     Dosage: 10 MG, EACH MORNING
     Route: 048
     Dates: start: 19680101
  6. CORTRIL [Concomitant]
     Dosage: 5 MG, EACH EVENING
     Route: 048
     Dates: start: 19680101
  7. THYRADIN S [Concomitant]
     Indication: HYPOPITUITARISM
     Dosage: 100 UG, EACH MORNING
     Route: 048
     Dates: start: 19680101
  8. ENARMON                            /00103102/ [Concomitant]
     Indication: HYPOPITUITARISM
     Dosage: 125 MG, MONTHLY (1/M)
     Route: 030
     Dates: start: 19680101, end: 20100702
  9. URSO 250 [Concomitant]
     Indication: HEPATITIS C
     Dosage: 200 MG, 3/D
     Route: 048
  10. AMOBAN [Concomitant]
     Indication: INSOMNIA
     Dosage: 7.5 MG, DAILY (1/D)
     Route: 048
  11. SILECE [Concomitant]
     Indication: INSOMNIA
     Dosage: 1 MG, DAILY (1/D)
     Route: 048

REACTIONS (4)
  - ARTHRALGIA [None]
  - CHRONIC MYELOID LEUKAEMIA [None]
  - SCIATICA [None]
  - TESTICULAR PAIN [None]
